FAERS Safety Report 23289169 (Version 2)
Quarter: 2024Q1

REPORT INFORMATION
  Report Type: Report from Study
  Country: CA (occurrence: None)
  Receive Date: 20231212
  Receipt Date: 20240111
  Transmission Date: 20240409
  Serious: Yes (Disabling)
  Sender: FDA-Public Use
  Company Number: 2023A266937

PATIENT
  Age: 676 Month
  Sex: Female
  Weight: 79.8 kg

DRUGS (5)
  1. LYNPARZA [Suspect]
     Active Substance: OLAPARIB
     Indication: Ovarian cancer
     Dosage: DOSAGE WAS REDUCED BY 50MG
     Route: 048
     Dates: start: 20230424, end: 202306
  2. LYNPARZA [Suspect]
     Active Substance: OLAPARIB
     Indication: Ovarian cancer
     Route: 048
     Dates: start: 202307
  3. OLANZAPINE [Concomitant]
     Active Substance: OLANZAPINE
     Indication: Nausea
     Dosage: 2.5 MG AT BEDTIME
  4. ONDANSETRON [Concomitant]
     Active Substance: ONDANSETRON
  5. PROCHLORPERAZINE [Concomitant]
     Active Substance: PROCHLORPERAZINE
     Dosage: 10.0MG UNKNOWN

REACTIONS (9)
  - Illness [Unknown]
  - Abdominal discomfort [Recovered/Resolved]
  - Dysgeusia [Not Recovered/Not Resolved]
  - Drug clearance decreased [Unknown]
  - Fatigue [Recovered/Resolved]
  - Weight decreased [Unknown]
  - Nausea [Recovered/Resolved]
  - Dyspepsia [Recovered/Resolved]
  - Decreased appetite [Recovered/Resolved]

NARRATIVE: CASE EVENT DATE: 20230401
